FAERS Safety Report 4509102-2 (Version None)
Quarter: 2004Q4

REPORT INFORMATION
  Report Type: 
  Country: None (occurrence: None)
  Receive Date: 20041025
  Receipt Date: 20030923
  Transmission Date: 20050328
  Serious: Yes (Other)
  Sender: FDA-Public Use
  Company Number: NSADSS2003024584

PATIENT
  Age: 78 Year
  Sex: Female
  Weight: 88.4514 kg

DRUGS (29)
  1. REMICADE [Suspect]
     Indication: RHEUMATOID ARTHRITIS
     Dosage: 300 MG, 1 IN 1 TOTAL, INTRAVENOUS DRIP
     Route: 041
     Dates: start: 20000810
  2. REMICADE [Suspect]
     Indication: RHEUMATOID ARTHRITIS
     Dosage: 300 MG, 1 IN 1 TOTAL, INTRAVENOUS DRIP
     Route: 041
     Dates: start: 20000823
  3. REMICADE [Suspect]
     Dosage: 400 MG, 1 IN 1 TOTAL, INTRAVENOUS DRIP
     Route: 041
     Dates: start: 20000914
  4. REMICADE [Suspect]
     Dosage: 400 MG, 1 IN 1 DAY, INTRAVENIOUS DRIP
     Route: 041
     Dates: start: 20001026
  5. REMICADE [Suspect]
     Dosage: 400 MG, 1 IN 1 TOTAL, INTRAVENOUS DRIP
     Route: 041
     Dates: start: 20001207
  6. REMICADE [Suspect]
     Dosage: 400 MG, 1 IN 1 TOTAL, INTRAVENOUS DRIP
     Route: 041
     Dates: start: 20010524
  7. REMICADE [Suspect]
     Dosage: 400 MG, 1 IN 1 TOTAL, INTRAVENOUS DRIP
     Route: 041
     Dates: start: 20010719
  8. REMICADE [Suspect]
     Dosage: 400 MG, 1 IN 1 TOTAL, INTRAVENOUS DRIP
     Route: 041
     Dates: start: 20010920
  9. REMICADE [Suspect]
     Dosage: 400 MG, 1 IN 1 TOTAL, INTRAVENOUS DRIP
     Route: 041
     Dates: start: 20011101
  10. REMICADE [Suspect]
     Dosage: 400 MG, 1 IN 1 TOTAL, INTRAVENOUS DRIP
     Route: 041
     Dates: start: 20020108
  11. REMICADE [Suspect]
     Dosage: 400 MG, 1 IN 1 TOTAL, INTRAVENOUS DRIP
     Route: 041
     Dates: start: 20020411
  12. REMICADE [Suspect]
     Dosage: 400 MG, 1 IN 1 TOTAL, INTRAVENOUS DRIP
     Route: 041
     Dates: start: 20020731
  13. REMICADE [Suspect]
     Dosage: 400 MG, 1 IN 1 TOTAL, INTRAVENOUS DRIP
     Route: 041
     Dates: start: 20021113
  14. REMICADE [Suspect]
     Dosage: 400 MG, 1 IN 1 TOTAL, INTRAVENOUS DRIP
     Route: 041
     Dates: start: 20030115
  15. REMICADE [Suspect]
     Dosage: 400 MG, 1 IN 1 TOTAL, INTRAVENOUS DRIP
     Route: 041
     Dates: start: 20030528
  16. REMICADE [Suspect]
     Dosage: 400 MG, 1 IN 1 TOTAL, INTRAVENOUS DRIP
     Route: 041
     Dates: start: 20030807
  17. HUMULIN N [Concomitant]
  18. HUMALOG [Concomitant]
  19. NORVASC [Concomitant]
  20. DIOVAN [Concomitant]
  21. GEMFIBROZIL [Concomitant]
  22. THYROXINE (LEVOTHYROXINE SODIUM) [Concomitant]
  23. METHOTREXATE [Concomitant]
  24. PREDNISONE [Concomitant]
  25. PREVACID [Concomitant]
  26. SLOW-MAG (MAGNESIUM CHLORIDE ANHYDROUS) [Concomitant]
  27. TIMOLOL MALEATE [Concomitant]
  28. MULTIVITAMIN (MULTIVITAMINS) [Concomitant]
  29. ASPRIN (ACETYLSALICYLIC ACID) [Concomitant]

REACTIONS (1)
  - BREAST CANCER [None]
